FAERS Safety Report 5869595-5 (Version None)
Quarter: 2008Q3

REPORT INFORMATION
  Report Type: 
  Country: None (occurrence: None)
  Receive Date: 20080904
  Receipt Date: 20080207
  Transmission Date: 20090109
  Serious: No
  Sender: FDA-Public Use
  Company Number: US-KINGPHARMUSA00001-K200800173

PATIENT

DRUGS (3)
  1. CYTOMEL [Suspect]
     Indication: HYPOTHYROIDISM
     Dosage: 5 MCG, QD
     Route: 048
     Dates: start: 20070101
  2. CYTOMEL [Suspect]
     Dosage: 10 MCG, QD
     Route: 048
     Dates: end: 20080131
  3. SYNTHROID [Concomitant]
     Indication: HYPOTHYROIDISM
     Dosage: 100 MCG, UNK
     Dates: end: 20070801

REACTIONS (2)
  - PROTEIN TOTAL ABNORMAL [None]
  - WEIGHT DECREASED [None]
